FAERS Safety Report 19484441 (Version 1)
Quarter: 2021Q3

REPORT INFORMATION
  Report Type: Spontaneous
  Country: UA (occurrence: UA)
  Receive Date: 20210701
  Receipt Date: 20210701
  Transmission Date: 20211014
  Serious: Yes (Hospitalization, Other)
  Sender: FDA-Public Use
  Company Number: UA-ASTRAZENECA-2021A577822

PATIENT
  Age: 1 Year
  Sex: Female

DRUGS (1)
  1. PULMICORT TURBUHALER [Suspect]
     Active Substance: BUDESONIDE
     Dosage: 0.25, 2 ML. 2 TIMES A DAY
     Route: 055

REACTIONS (3)
  - Stomatitis [Recovered/Resolved]
  - Systemic mycosis [Recovering/Resolving]
  - Candida infection [Recovered/Resolved]
